FAERS Safety Report 7830977-3 (Version None)
Quarter: 2011Q4

REPORT INFORMATION
  Report Type: 
  Country: None (occurrence: None)
  Receive Date: 20111021
  Receipt Date: 20110911
  Transmission Date: 20120403
  Serious: Yes (Death, Other)
  Sender: FDA-Public Use
  Company Number: CN-JNJFOC-20111005243

PATIENT
  Age: 60 Year

DRUGS (2)
  1. SPORANOX [Suspect]
     Indication: MYELODYSPLASTIC SYNDROME
     Dosage: FOR 3 DAYS
     Route: 042
  2. SPORANOX [Suspect]
     Indication: PULMONARY MYCOSIS
     Dosage: FOR 3 DAYS
     Route: 042

REACTIONS (1)
  - CARDIAC FAILURE ACUTE [None]
